FAERS Safety Report 10203902 (Version 1)
Quarter: 2014Q2

REPORT INFORMATION
  Report Type: Spontaneous
  Country: US (occurrence: None)
  Receive Date: 20140523
  Receipt Date: 20140523
  Transmission Date: 20141212
  Serious: Yes (Other)
  Sender: FDA-Public Use
  Company Number: 2014P1004233

PATIENT
  Age: 56 Year
  Sex: Female

DRUGS (3)
  1. HYDROXYCHLOROQUINE [Suspect]
     Indication: RHEUMATOID ARTHRITIS
  2. NABUMETONE [Suspect]
  3. IBUPROFEN [Suspect]

REACTIONS (4)
  - Visual acuity reduced [None]
  - Impaired driving ability [None]
  - Maculopathy [None]
  - Toxicity to various agents [None]
